FAERS Safety Report 6715343-6 (Version None)
Quarter: 2010Q2

REPORT INFORMATION
  Report Type: 
  Country: None (occurrence: None)
  Receive Date: 20100507
  Receipt Date: 20100427
  Transmission Date: 20101027
  Serious: Yes (Hospitalization)
  Sender: FDA-Public Use
  Company Number: JP-BRISTOL-MYERS SQUIBB COMPANY-14954259

PATIENT
  Age: 77 Year
  Sex: Male
  Weight: 65 kg

DRUGS (5)
  1. ERBITUX [Suspect]
     Indication: RECTAL CANCER
     Dosage: INITIAL LOADING DOSE, THEN WITH 400MG/M2=6JAN09-6JAN09,1 IN 1 WK 15JAN-26NOV09=250MG/M2
     Route: 042
     Dates: start: 20090106, end: 20091126
  2. IRINOTECAN HCL [Concomitant]
     Indication: RECTAL CANCER
     Dosage: 250MG(26MAR09-10SEP09) 11TH INF
     Route: 042
     Dates: start: 20090122, end: 20090129
  3. POLARAMINE [Concomitant]
     Indication: PREMEDICATION
     Route: 042
     Dates: start: 20090106, end: 20091126
  4. DEXART [Concomitant]
     Indication: PREMEDICATION
     Route: 042
     Dates: start: 20090106, end: 20091126
  5. KYTRIL [Concomitant]
     Indication: ANTIEMETIC SUPPORTIVE CARE
     Route: 042
     Dates: start: 20090106, end: 20091126

REACTIONS (1)
  - TRANSIENT ISCHAEMIC ATTACK [None]
